FAERS Safety Report 5655956-6 (Version None)
Quarter: 2008Q1

REPORT INFORMATION
  Report Type: 
  Country: None (occurrence: None)
  Receive Date: 20080307
  Receipt Date: 20080229
  Transmission Date: 20080703
  Serious: Yes (Disabling)
  Sender: FDA-Public Use
  Company Number: DE-BOEHRINGER INGELHEIM GMBH, GERMANY-2008-DE-01217DE

PATIENT
  Sex: Male
  Weight: 86 kg

DRUGS (1)
  1. AGGRENOX [Suspect]
     Indication: PROPHYLAXIS
     Dosage: RT: DAILY DOSE 2X/DAY
     Route: 048
     Dates: start: 20071211, end: 20071218

REACTIONS (1)
  - CEREBRAL INFARCTION [None]
